FAERS Safety Report 24069596 (Version 1)
Quarter: 2024Q3

REPORT INFORMATION
  Report Type: Spontaneous
  Country: US (occurrence: US)
  Receive Date: 20240710
  Receipt Date: 20240710
  Transmission Date: 20241016
  Serious: No
  Sender: ROCHE
  Company Number: US-ROCHE-3437731

PATIENT
  Age: 43 Year
  Sex: Female

DRUGS (2)
  1. ALECTINIB [Suspect]
     Active Substance: ALECTINIB
     Indication: Non-small cell lung cancer metastatic
     Route: 065
  2. BRIGATINIB [Concomitant]
     Active Substance: BRIGATINIB
     Indication: Lymphangiosis carcinomatosa
     Route: 065

REACTIONS (2)
  - Drug resistance [Unknown]
  - Anaplastic lymphoma kinase gene mutation [Unknown]
